FAERS Safety Report 8924898 (Version 1)
Quarter: 2012Q4

REPORT INFORMATION
  Report Type: 
  Country: JP (occurrence: JP)
  Receive Date: 20121126
  Receipt Date: 20121126
  Transmission Date: 20130627
  Serious: Yes (Other)
  Sender: FDA-Public Use
  Company Number: JP-BAXTER-2012BAX024188

PATIENT
  Sex: Female

DRUGS (2)
  1. DIANEAL PD-2 [Suspect]
     Indication: RENAL FAILURE CHRONIC
     Route: 033
     Dates: start: 20120111
  2. EXTRANEAL [Suspect]
     Indication: RENAL FAILURE CHRONIC
     Route: 033
     Dates: start: 20120111

REACTIONS (3)
  - Dizziness [Recovering/Resolving]
  - Back pain [Recovering/Resolving]
  - Epistaxis [Recovered/Resolved]
